FAERS Safety Report 4529409-2 (Version None)
Quarter: 2004Q4

REPORT INFORMATION
  Report Type: 
  Country: None (occurrence: None)
  Receive Date: 20041216
  Receipt Date: 20041213
  Transmission Date: 20050328
  Serious: Yes (Other)
  Sender: FDA-Public Use
  Company Number: 003729

PATIENT
  Sex: Female

DRUGS (5)
  1. MEDROXYPROGESTERONE ACETATE [Suspect]
     Dates: start: 19930101
  2. PROVERA [Suspect]
     Dates: start: 19930101
  3. ESTRACE [Suspect]
     Dates: start: 19940101
  4. CYCRIN [Suspect]
     Dates: start: 19940101
  5. PREMPRO [Suspect]
     Dates: start: 19950101

REACTIONS (1)
  - BREAST CANCER FEMALE [None]
